FAERS Safety Report 19014818 (Version 2)
Quarter: 2021Q1

REPORT INFORMATION
  Report Type: Spontaneous
  Country: US (occurrence: US)
  Receive Date: 20210316
  Receipt Date: 20210324
  Transmission Date: 20210420
  Serious: Yes (Hospitalization)
  Sender: FDA-Public Use
  Company Number: US-PFIZER INC-2021255180

PATIENT
  Age: 78 Year
  Sex: Female

DRUGS (1)
  1. PREMARIN [Suspect]
     Active Substance: ESTROGENS, CONJUGATED
     Dosage: 0.5 G, 2X/WEEK [APPLY VAGINALLY TWICE A WEEK (1/2 GRAM) + SMALL AMOUNT EXTERNAL AS WELL]
     Route: 067

REACTIONS (1)
  - Cognitive disorder [Unknown]
